FAERS Safety Report 16051430 (Version 1)
Quarter: 2019Q2

REPORT INFORMATION
  Report Type: Spontaneous
  Country: US (occurrence: US)
  Receive Date: 20190307
  Receipt Date: 20190307
  Transmission Date: 20190711
  Serious: Yes (Disabling)
  Sender: FDA-Public Use
  Company Number: None

PATIENT
  Age: 72 Year
  Sex: Female

DRUGS (1)
  1. BACLOFEN. [Suspect]
     Active Substance: BACLOFEN
     Indication: MUSCLE SPASMS
     Dosage: ?          QUANTITY:1 DROP(S);?
     Route: 048
     Dates: start: 20171229, end: 20180103

REACTIONS (2)
  - Coordination abnormal [None]
  - Propulsive gait [None]

NARRATIVE: CASE EVENT DATE: 20181229
